FAERS Safety Report 12012740 (Version 3)
Quarter: 2016Q1

REPORT INFORMATION
  Report Type: Report from Study
  Country: CA (occurrence: CA)
  Receive Date: 20160205
  Receipt Date: 20160331
  Transmission Date: 20160526
  Serious: Yes (Hospitalization)
  Sender: FDA-Public Use
  Company Number: CA-ABBVIE-16K-028-1533672-00

PATIENT
  Age: 8 Year
  Sex: Female
  Weight: 25.3 kg

DRUGS (3)
  1. HUMIRA [Suspect]
     Active Substance: ADALIMUMAB
     Route: 058
     Dates: start: 20151230, end: 20151230
  2. HUMIRA [Suspect]
     Active Substance: ADALIMUMAB
     Route: 058
     Dates: start: 20160128
  3. HUMIRA [Suspect]
     Active Substance: ADALIMUMAB
     Indication: CROHN^S DISEASE
     Route: 058
     Dates: start: 20141126, end: 2015

REACTIONS (9)
  - Drug level decreased [Not Recovered/Not Resolved]
  - Diarrhoea [Recovering/Resolving]
  - Irritable bowel syndrome [Recovering/Resolving]
  - Crohn^s disease [Recovering/Resolving]
  - Haemoglobin decreased [Unknown]
  - Crohn^s disease [Not Recovered/Not Resolved]
  - Malaise [Recovering/Resolving]
  - Haematochezia [Recovering/Resolving]
  - Platelet count increased [Unknown]

NARRATIVE: CASE EVENT DATE: 2015
